FAERS Safety Report 9523876 (Version 1)
Quarter: 2013Q3

REPORT INFORMATION
  Report Type: Spontaneous
  Country: US (occurrence: None)
  Receive Date: 20130912
  Receipt Date: 20130912
  Transmission Date: 20140515
  Serious: Yes (Hospitalization)
  Sender: FDA-Public Use
  Company Number: US-000778

PATIENT
  Age: 60 Year
  Sex: Male

DRUGS (1)
  1. GATTEX [Suspect]
     Indication: SHORT-BOWEL SYNDROME
     Dosage: STREN/ VOLUM: 0.28 ML/ FREQU: ONCE A DAY SUBCUTANEOUS
     Route: 058
     Dates: start: 2013

REACTIONS (1)
  - Hospitalisation [None]
